FAERS Safety Report 7967971-8 (Version None)
Quarter: 2011Q4

REPORT INFORMATION
  Report Type: 
  Country: None (occurrence: None)
  Receive Date: 20111208
  Receipt Date: 20111208
  Transmission Date: 20120403
  Serious: No
  Sender: FDA-Public Use
  Company Number: None

PATIENT
  Sex: Female
  Weight: 12.2 kg

DRUGS (2)
  1. LAMOTRIGINE [Suspect]
     Dosage: 5 MG 1 TABLET TWICE DAILY BY MOUTH
     Route: 048
  2. LAMOTRIGINE [Suspect]
     Indication: PARTIAL SEIZURES
     Dosage: 25 MG 2 TABLETS TWICE DAILY BY MOUTH
     Route: 048
     Dates: start: 20111110

REACTIONS (2)
  - PRODUCT SUBSTITUTION ISSUE [None]
  - CONVULSION [None]
